FAERS Safety Report 9126993 (Version 2)
Quarter: 2013Q1

REPORT INFORMATION
  Report Type: Spontaneous
  Country: BR (occurrence: BR)
  Receive Date: 20130228
  Receipt Date: 20130307
  Transmission Date: 20140127
  Serious: Yes (Other)
  Sender: FDA-Public Use
  Company Number: PHHY2012BR082670

PATIENT
  Sex: Female
  Weight: 56 kg

DRUGS (3)
  1. SANDOSTATIN LAR [Suspect]
     Indication: NEUROENDOCRINE TUMOUR
     Dosage: 20 MG, (1 MONTHLY APPLICATION)
  2. SANDOSTATIN LAR [Suspect]
     Dosage: 20 MG, (2 MONTHLY APPLICATIONS)
  3. SANDOSTATIN LAR [Suspect]
     Dosage: 20 MG, (1 MONTHLY APPLICATIONS)

REACTIONS (2)
  - Neoplasm [Unknown]
  - Blood chromogranin A increased [Unknown]
